FAERS Safety Report 7272833-8 (Version None)
Quarter: 2011Q1

REPORT INFORMATION
  Report Type: 
  Country: None (occurrence: None)
  Receive Date: 20110126
  Receipt Date: 20110111
  Transmission Date: 20110831
  Serious: Yes (Hospitalization, Other)
  Sender: FDA-Public Use
  Company Number: CA-004378

PATIENT
  Age: 79 Year
  Sex: Male
  Weight: 82.5547 kg

DRUGS (10)
  1. METOPROLOL [Concomitant]
  2. PREDNISONE [Concomitant]
  3. COUMADIN [Concomitant]
  4. LUPRON [Concomitant]
  5. FIRMAGON [Suspect]
     Indication: PROSTATE CANCER
     Dosage: 240 MG 1X SUBCUTANEOUS
     Route: 058
     Dates: start: 20101117, end: 20101117
  6. ASPIRIN [Concomitant]
  7. COLACE [Concomitant]
  8. DIGOXIN [Concomitant]
  9. WARFARIN [Concomitant]
  10. CRESTOR [Concomitant]

REACTIONS (9)
  - MITRAL VALVE INCOMPETENCE [None]
  - CARDIAC FAILURE [None]
  - MITRAL VALVE DISEASE [None]
  - RIGHT ATRIAL DILATATION [None]
  - FATIGUE [None]
  - CARDIAC ENZYMES INCREASED [None]
  - TRICUSPID VALVE INCOMPETENCE [None]
  - AORTIC VALVE DISEASE [None]
  - LEFT ATRIAL DILATATION [None]
